FAERS Safety Report 17213887 (Version 1)
Quarter: 2019Q4

REPORT INFORMATION
  Report Type: Spontaneous
  Country: SE (occurrence: SE)
  Receive Date: 20191230
  Receipt Date: 20191230
  Transmission Date: 20200122
  Serious: Yes (Hospitalization)
  Sender: FDA-Public Use
  Company Number: SE-US-PROVELL PHARMACEUTICALS LLC-E2B_90036703

PATIENT
  Age: 46 Year
  Sex: Female
  Weight: 75 kg

DRUGS (7)
  1. LEVOTHYROXINE. [Suspect]
     Active Substance: LEVOTHYROXINE
     Indication: PRODUCT USED FOR UNKNOWN INDICATION
  2. EUTHYROX [Suspect]
     Active Substance: LEVOTHYROXINE SODIUM
     Indication: POST PROCEDURAL HYPOTHYROIDISM
     Dates: start: 2016
  3. LEVAXIN [Suspect]
     Active Substance: LEVOTHYROXINE SODIUM
     Indication: POST PROCEDURAL HYPOTHYROIDISM
     Dates: start: 20160201
  4. LEVAXIN [Suspect]
     Active Substance: LEVOTHYROXINE SODIUM
     Dosage: ON AN UNKNOWN DATE, THE DOSE WAS REDUCED (UNSPECIFIED DOSE DETAILS)
  5. EUTHYROX [Suspect]
     Active Substance: LEVOTHYROXINE SODIUM
     Dosage: ON AN UNKNOWN DATE, THE DOSE WAS REDUCED (UNSPECIFIED DOSE DETAILS)
  6. LIOTHYRONIN [Suspect]
     Active Substance: LIOTHYRONINE SODIUM
     Indication: POST PROCEDURAL HYPOTHYROIDISM
     Dosage: UNIT DOSE: 1 (UNSPECIFIED UNITS)?0.5-2 TABLETS ONCE DAILY?THERPY START DATE: AN UNSPECIFIED DATE IN
  7. LIOTHYRONIN [Suspect]
     Active Substance: LIOTHYRONINE SODIUM
     Dosage: ON AN UNKNOWN DATE, THE DOSE WAS REDUCED (UNSPECIFIED DOSE DETAILS)

REACTIONS (4)
  - Muscle spasms [Recovered/Resolved]
  - Dyspnoea [Recovered/Resolved]
  - Hypersensitivity [Recovered/Resolved]
  - Malaise [Recovered/Resolved]

NARRATIVE: CASE EVENT DATE: 20160801
